FAERS Safety Report 18529357 (Version 1)
Quarter: 2020Q4

REPORT INFORMATION
  Report Type: Report from Study
  Country: None (occurrence: CO)
  Receive Date: 20201121
  Receipt Date: 20201121
  Transmission Date: 20210114
  Serious: Yes (Other)
  Sender: FDA-Public Use
  Company Number: CO-ABBVIE-20K-036-3659588-00

PATIENT
  Age: 25 Year
  Sex: Male
  Weight: 67 kg

DRUGS (6)
  1. HUMIRA [Suspect]
     Active Substance: ADALIMUMAB
     Indication: ANKYLOSING SPONDYLITIS
     Route: 058
     Dates: start: 20141025
  2. MELOXICAM. [Concomitant]
     Active Substance: MELOXICAM
     Indication: ARTHRALGIA
     Route: 048
     Dates: start: 2014, end: 202006
  3. HUMIRA [Suspect]
     Active Substance: ADALIMUMAB
     Indication: ANKYLOSING SPONDYLITIS
     Route: 058
  4. FOLIC ACID. [Concomitant]
     Active Substance: FOLIC ACID
     Indication: ANKYLOSING SPONDYLITIS
     Route: 048
     Dates: start: 2014
  5. METHOTREXATE. [Concomitant]
     Active Substance: METHOTREXATE
     Indication: ANKYLOSING SPONDYLITIS
     Route: 048
     Dates: start: 2014
  6. MELOXICAM. [Concomitant]
     Active Substance: MELOXICAM
     Indication: BACK PAIN

REACTIONS (5)
  - Vasodilatation [Recovering/Resolving]
  - Asthmatic crisis [Recovering/Resolving]
  - Asthma [Recovering/Resolving]
  - Abdominal pain [Recovering/Resolving]
  - Varicocele [Recovering/Resolving]

NARRATIVE: CASE EVENT DATE: 2015
